FAERS Safety Report 9156442 (Version 1)
Quarter: 2013Q1

REPORT INFORMATION
  Report Type: Spontaneous
  Country: US (occurrence: None)
  Receive Date: 20130307
  Receipt Date: 20130307
  Transmission Date: 20140127
  Serious: Yes (Other)
  Sender: FDA-Public Use
  Company Number: None

PATIENT
  Age: 56 Year
  Sex: Male
  Weight: 79.38 kg

DRUGS (1)
  1. BUPROPION [Suspect]
     Indication: DEPRESSION
     Route: 048
     Dates: start: 20130101, end: 20130305

REACTIONS (8)
  - Depression [None]
  - Disease recurrence [None]
  - Insomnia [None]
  - Anxiety [None]
  - Paranoia [None]
  - Fatigue [None]
  - Disturbance in attention [None]
  - Product substitution issue [None]
